FAERS Safety Report 9440097 (Version 1)
Quarter: 2013Q3

REPORT INFORMATION
  Report Type: Spontaneous
  Country: IT (occurrence: IT)
  Receive Date: 20130805
  Receipt Date: 20130805
  Transmission Date: 20140515
  Serious: Yes (Hospitalization)
  Sender: FDA-Public Use
  Company Number: IT-PFIZER INC-2013224754

PATIENT
  Age: 62 Year
  Sex: Female

DRUGS (3)
  1. XANAX [Suspect]
     Indication: ANXIETY
     Dosage: 2.5 MG, DAILY
     Route: 048
     Dates: start: 20130531, end: 20130531
  2. HALCION [Suspect]
     Indication: INSOMNIA
     Dosage: 0.5 MG, DAILY
     Route: 048
     Dates: start: 20130531, end: 20130531
  3. PROMAZINE [Suspect]
     Indication: PSYCHOTIC DISORDER
     Dosage: 100 MG, DAILY
     Route: 048
     Dates: start: 20130531, end: 20130531

REACTIONS (3)
  - Hypotension [Recovered/Resolved]
  - Sopor [Recovered/Resolved]
  - Poisoning [Recovered/Resolved]
